FAERS Safety Report 6300786-5 (Version None)
Quarter: 2009Q3

REPORT INFORMATION
  Report Type: 
  Country: None (occurrence: None)
  Receive Date: 20090807
  Receipt Date: 20090727
  Transmission Date: 20100115
  Serious: Yes (Life-Threatening, Other)
  Sender: FDA-Public Use
  Company Number: CZ-RANBAXY-2009RR-26064

PATIENT
  Age: 68 Year
  Sex: Female

DRUGS (5)
  1. MIDAZOLAM HCL [Suspect]
  2. SUFENTANIL CITRATE [Suspect]
  3. PROPOFOL [Suspect]
  4. ROCURONIUM BROMIDE [Suspect]
     Dosage: 50 MG, UNK
  5. BRAUNODERM [Suspect]

REACTIONS (1)
  - ANAPHYLACTIC REACTION [None]
